FAERS Safety Report 8504056-6 (Version None)
Quarter: 2012Q3

REPORT INFORMATION
  Report Type: 
  Country: None (occurrence: None)
  Receive Date: 20120711
  Receipt Date: 20120703
  Transmission Date: 20120928
  Serious: Yes (Death, Hospitalization)
  Sender: FDA-Public Use
  Company Number: JP-BRISTOL-MYERS SQUIBB COMPANY-15587686

PATIENT
  Age: 85 Year
  Sex: Female
  Weight: 39 kg

DRUGS (11)
  1. WARFARIN SODIUM [Concomitant]
     Dosage: TABS ROA:GASTRIC FISULA
  2. LAC-B [Concomitant]
     Route: 048
     Dates: start: 20110223, end: 20110301
  3. FLOMOX [Concomitant]
     Dosage: TABS ROA:GASTRIC FISULA
     Dates: start: 20110215, end: 20110219
  4. ADALAT [Concomitant]
     Dosage: CAPS ROA:GASTRIC FISULA
     Dates: start: 20110214, end: 20110214
  5. ANPLAG [Concomitant]
     Route: 048
     Dates: end: 20110301
  6. MAGNESIUM OXIDE [Concomitant]
     Dosage: ROA:GASTRIC FISTULA
  7. FLOMAX [Suspect]
     Route: 048
     Dates: start: 20110215, end: 20110220
  8. ANPLAG [Concomitant]
     Dosage: TABS ROA:GASTRIC FISULA
  9. ASPIRIN [Concomitant]
     Dosage: ROA:GASTRIC FISULA
  10. SEPAMIT [Concomitant]
     Dosage: GRA ROA:GASTRIC FISULA
     Dates: start: 20110214, end: 20110214
  11. MAXIPIME [Suspect]
     Indication: PNEUMONIA
     Dosage: ROUTE:IV
     Route: 041
     Dates: start: 20110218, end: 20110221

REACTIONS (2)
  - VOMITING [None]
  - HEPATITIS FULMINANT [None]
